FAERS Safety Report 7613885 (Version 4)
Quarter: 2012Q4

REPORT INFORMATION
  Report Type: Report from Study
  Country: FR (occurrence: FR)
  Receive Date: 20101001
  Receipt Date: 20121011
  Transmission Date: 20130627
  Serious: Yes (Life-Threatening, Hospitalization)
  Sender: FDA-Public Use
  Company Number: FR-US-EMD SERONO, INC.-220001N04FRA

PATIENT
  Age: 25 Year
  Sex: Female
  Weight: 73 kg

DRUGS (11)
  1. SAIZEN [Suspect]
     Indication: HYPOPITUITARISM
     Route: 058
     Dates: start: 20040227, end: 20040809
  2. SAIZEN [Suspect]
     Dates: start: 20050411
  3. LEVOTHYROX [Concomitant]
     Indication: HYPOPITUITARISM
     Route: 048
     Dates: start: 19950113
  4. HYDROCORTISONE [Concomitant]
     Indication: BLOOD CORTISOL ABNORMAL
     Route: 048
     Dates: start: 19950516
  5. MINIRIN [Concomitant]
     Indication: DIABETES INSIPIDUS
     Route: 048
     Dates: start: 199602
  6. DEROXAT [Concomitant]
     Indication: DEPRESSION
     Route: 048
     Dates: start: 199612
  7. XENICAL [Concomitant]
     Indication: OBESITY
     Route: 048
     Dates: start: 1998, end: 20040810
  8. MINIDRIL [Concomitant]
     Indication: GONADOTROPHIN DEFICIENCY
     Route: 048
     Dates: start: 20021106, end: 20040810
  9. VALIUM [Concomitant]
     Indication: ANXIETY
     Route: 048
     Dates: start: 200210, end: 20040810
  10. LOXAPAC [Concomitant]
     Indication: ABNORMAL BEHAVIOUR
     Route: 048
     Dates: start: 200210, end: 20040810
  11. SPASMINE [Concomitant]
     Indication: ANXIETY
     Route: 048
     Dates: start: 200312, end: 20040810

REACTIONS (2)
  - Depression [Not Recovered/Not Resolved]
  - Suicide attempt [Recovered/Resolved with Sequelae]
